FAERS Safety Report 16846554 (Version 1)
Quarter: 2019Q3

REPORT INFORMATION
  Report Type: Spontaneous
  Country: FR (occurrence: FR)
  Receive Date: 20190924
  Receipt Date: 20190924
  Transmission Date: 20191005
  Serious: Yes (Death, Other)
  Sender: FDA-Public Use
  Company Number: FR-ASTRAZENECA-2019SF33638

PATIENT
  Age: 18 Year
  Sex: Female
  Weight: 45.5 kg

DRUGS (8)
  1. DAPTOMYCINE [Suspect]
     Active Substance: DAPTOMYCIN
     Indication: PYREXIA
     Route: 042
     Dates: start: 20171225, end: 20171227
  2. DEFITELIO [Suspect]
     Active Substance: DEFIBROTIDE SODIUM
     Indication: VENOOCCLUSIVE DISEASE
     Route: 042
     Dates: start: 20171124, end: 20171226
  3. FUROSEMIDE. [Suspect]
     Active Substance: FUROSEMIDE
     Indication: ASCITES
     Route: 048
     Dates: start: 20171127, end: 20171227
  4. ESOMEPRAZOLE. [Suspect]
     Active Substance: ESOMEPRAZOLE MAGNESIUM
     Indication: GASTROOESOPHAGEAL REFLUX PROPHYLAXIS
     Route: 048
     Dates: start: 20171221, end: 20171227
  5. SPIRONOLACTONE. [Suspect]
     Active Substance: SPIRONOLACTONE
     Indication: ASCITES
     Route: 048
     Dates: start: 20171223, end: 20171227
  6. MEROPENEM. [Suspect]
     Active Substance: MEROPENEM
     Indication: PYREXIA
     Route: 042
     Dates: start: 20171206, end: 20171227
  7. ACICLOVIR [Suspect]
     Active Substance: ACYCLOVIR
     Indication: PYREXIA
     Route: 042
     Dates: start: 20171217, end: 20171227
  8. AMPHOTERICINE B [Suspect]
     Active Substance: AMPHOTERICIN B
     Indication: PYREXIA
     Route: 065
     Dates: start: 20171226, end: 20171227

REACTIONS (4)
  - Multiple organ dysfunction syndrome [Fatal]
  - Haemorrhagic disorder [Fatal]
  - Intentional product use issue [Fatal]
  - Off label use [Fatal]

NARRATIVE: CASE EVENT DATE: 20171124
